FAERS Safety Report 8986181 (Version 1)
Quarter: 2012Q4

REPORT INFORMATION
  Report Type: Spontaneous
  Country: US (occurrence: None)
  Receive Date: 20121214
  Receipt Date: 20121214
  Transmission Date: 20130627
  Serious: Yes (Life-Threatening, Hospitalization)
  Sender: FDA-Public Use
  Company Number: ACO_33347_2012

PATIENT
  Age: 39 Year
  Sex: Female

DRUGS (2)
  1. ZANAFLEX [Suspect]
     Indication: DRUG USE FOR UNKNOWN INDICATION
     Route: 048
     Dates: start: 20070712
  2. VICODIN [Suspect]
     Indication: DRUG USE FOR UNKNOWN INDICATION
     Route: 048

REACTIONS (3)
  - Intentional overdose [None]
  - Alanine aminotransferase increased [None]
  - Liver injury [None]
